FAERS Safety Report 18658239 (Version 1)
Quarter: 2020Q4

REPORT INFORMATION
  Report Type: Spontaneous
  Country: US (occurrence: US)
  Receive Date: 20201224
  Receipt Date: 20201224
  Transmission Date: 20210114
  Serious: No
  Sender: FDA-Public Use
  Company Number: US-ALLERGAN-2001459US

PATIENT
  Sex: Female

DRUGS (1)
  1. DAPSONE 5% GEL [Suspect]
     Active Substance: DAPSONE
     Indication: PRODUCT USED FOR UNKNOWN INDICATION
     Dosage: UNK
     Dates: start: 201910

REACTIONS (3)
  - Application site pain [Unknown]
  - Application site exfoliation [Unknown]
  - Application site pruritus [Unknown]
